FAERS Safety Report 4944785-4 (Version None)
Quarter: 2006Q1

REPORT INFORMATION
  Report Type: 
  Country: None (occurrence: None)
  Receive Date: 20060315
  Receipt Date: 20040211
  Transmission Date: 20060701
  Serious: Yes (Death, Hospitalization, Other)
  Sender: FDA-Public Use
  Company Number: FR-MERCK-0402FRA00031

PATIENT
  Age: 78 Year
  Sex: Male

DRUGS (10)
  1. ZOCOR [Suspect]
     Indication: HYPERCHOLESTEROLAEMIA
     Route: 048
     Dates: start: 20000615, end: 20030920
  2. BISOPROLOL [Concomitant]
     Indication: CORONARY ARTERY DISEASE
     Route: 048
     Dates: start: 20030720, end: 20030920
  3. ATENOLOL [Suspect]
     Indication: CORONARY ARTERY DISEASE
     Route: 048
     Dates: start: 19980101, end: 20030720
  4. AMLODIPINE BESYLATE [Suspect]
     Indication: CORONARY ARTERY DISEASE
     Route: 048
     Dates: end: 20030720
  5. FUROSEMIDE [Concomitant]
     Route: 065
  6. LISINOPRIL [Concomitant]
     Route: 065
  7. NIFEDIPINE [Concomitant]
     Route: 065
  8. OMEPRAZOLE SODIUM [Concomitant]
     Route: 065
  9. PREDNISOLONE SODIUM METASULFOBENZOATE [Concomitant]
     Route: 065
  10. FLUTICASONE PROPIONATE [Concomitant]

REACTIONS (2)
  - INTERSTITIAL LUNG DISEASE [None]
  - PULMONARY FIBROSIS [None]
